FAERS Safety Report 4290723-X (Version None)
Quarter: 2004Q1

REPORT INFORMATION
  Report Type: 
  Country: None (occurrence: None)
  Receive Date: 20040205
  Receipt Date: 20040126
  Transmission Date: 20041129
  Serious: Yes (Hospitalization)
  Sender: FDA-Public Use
  Company Number: 2004-00369

PATIENT
  Age: 58 Year
  Sex: Male

DRUGS (1)
  1. IMMUCYST (BCG - IT (CONNAUGHT)), AVENTIS PASTEUR LTD., LOT NOT NEP, I [Suspect]
     Indication: BLADDER CANCER
     Dosage: IN. , BLADDER

REACTIONS (2)
  - MILIARY PNEUMONIA [None]
  - PYREXIA [None]
